FAERS Safety Report 10345773 (Version 1)
Quarter: 2014Q3

REPORT INFORMATION
  Report Type: Spontaneous
  Country: FR (occurrence: FR)
  Receive Date: 20140728
  Receipt Date: 20140728
  Transmission Date: 20150326
  Serious: Yes (Other)
  Sender: FDA-Public Use
  Company Number: FR-TEVA-495678ISR

PATIENT
  Sex: Female

DRUGS (1)
  1. CETIRIZINE [Suspect]
     Active Substance: CETIRIZINE HYDROCHLORIDE
     Dates: start: 2012, end: 2012

REACTIONS (3)
  - Multiple sclerosis [Unknown]
  - Drug-induced liver injury [Recovered/Resolved]
  - Optic neuritis [Unknown]

NARRATIVE: CASE EVENT DATE: 2012
